FAERS Safety Report 6463940-8 (Version None)
Quarter: 2009Q4

REPORT INFORMATION
  Report Type: 
  Country: None (occurrence: None)
  Receive Date: 20091201
  Receipt Date: 20090305
  Transmission Date: 20100525
  Serious: No
  Sender: FDA-Public Use
  Company Number: US-BAYER-200915800NA

PATIENT
  Age: 43 Year
  Sex: Female
  Weight: 79 kg

DRUGS (2)
  1. MAGNEVIST [Suspect]
     Indication: NUCLEAR MAGNETIC RESONANCE IMAGING
     Dosage: TOTAL DAILY DOSE: 17 ML  UNIT DOSE: 100 ML
     Route: 042
  2. MEDROL [Concomitant]
     Indication: PREMEDICATION
     Dosage: AS USED: 50 MG

REACTIONS (1)
  - URTICARIA [None]
